FAERS Safety Report 16826680 (Version 2)
Quarter: 2019Q4

REPORT INFORMATION
  Report Type: Spontaneous
  Country: JP (occurrence: JP)
  Receive Date: 20190919
  Receipt Date: 20191004
  Transmission Date: 20200122
  Serious: Yes (Other)
  Sender: FDA-Public Use
  Company Number: JP-TEVA-2019-JP-1111765

PATIENT
  Age: 75 Year
  Sex: Male
  Weight: 48.8 kg

DRUGS (8)
  1. ATELEC [Concomitant]
     Active Substance: CILNIDIPINE
     Route: 065
  2. COMTAN [Concomitant]
     Active Substance: ENTACAPONE
     Route: 065
     Dates: start: 20180907
  3. YOKUKANSAN [Concomitant]
     Active Substance: HERBALS
     Route: 065
     Dates: start: 20190626
  4. DOPACOL [Concomitant]
     Active Substance: CARBIDOPA\LEVODOPA
     Route: 065
     Dates: start: 20180223
  5. MIRAPEX [Concomitant]
     Active Substance: PRAMIPEXOLE DIHYDROCHLORIDE
     Route: 065
     Dates: start: 20180518
  6. AZILECT [Suspect]
     Active Substance: RASAGILINE MESYLATE
     Indication: PARKINSON^S DISEASE
     Dosage: 1 MILLIGRAM DAILY;
     Route: 048
     Dates: start: 20190726, end: 20190905
  7. DOPS [Concomitant]
     Active Substance: DROXIDOPA
     Route: 065
     Dates: start: 20190621
  8. PREMINENT [Concomitant]
     Active Substance: HYDROCHLOROTHIAZIDE\LOSARTAN POTASSIUM
     Route: 065

REACTIONS (3)
  - Hypertensive crisis [Recovered/Resolved]
  - Condition aggravated [Unknown]
  - Orthostatic hypotension [Unknown]

NARRATIVE: CASE EVENT DATE: 201908
